FAERS Safety Report 6100184-3 (Version None)
Quarter: 2009Q1

REPORT INFORMATION
  Report Type: 
  Country: None (occurrence: None)
  Receive Date: 20090303
  Receipt Date: 20090217
  Transmission Date: 20090719
  Serious: Yes (Hospitalization)
  Sender: FDA-Public Use
  Company Number: KR-ROCHE-613219

PATIENT
  Sex: Male
  Weight: 51 kg

DRUGS (12)
  1. CAPECITABINE [Suspect]
     Dosage: TEMPORARILY INTERRUPTED.
     Route: 048
     Dates: start: 20081015, end: 20081205
  2. CAPECITABINE [Suspect]
     Route: 048
     Dates: start: 20081224
  3. CAPECITABINE [Suspect]
     Dosage: 3 WK CYCLES(2 WKS ON, 1 WK OFF) X 8 CYCLES((24 WKS) PER PROTOCOL; LAST DOSE PRIOR TO SAE 05FEB2009
     Route: 048
  4. OXALIPLATIN [Suspect]
     Dosage: FREQUENCY REPORTED AS QD/3WEEKS, TEMPORARILY INTERRUPTED.
     Route: 042
     Dates: start: 20081015, end: 20081126
  5. OXALIPLATIN [Suspect]
     Dosage: FREQUENCY REPORTED AS QD/3 WEEKS
     Route: 042
     Dates: start: 20081224
  6. OXALIPLATIN [Suspect]
     Dosage: GIVEN ON DAY 1 OF CYCLE FOR A TOTAL OF 8 CYCLES PER PROTOCOL; LAST DOSE PRIOR TO SAE: 04 FEB 2009.
     Route: 042
  7. METOCLOPRAMIDE [Concomitant]
     Dates: start: 20081015
  8. GRANISETRON [Concomitant]
     Dates: start: 20081224
  9. GRANISETRON [Concomitant]
     Dosage: DRUG: GRANISETRON INJ
     Dates: start: 20081224
  10. DEXAMETHASONE [Concomitant]
     Dates: start: 20081224
  11. FAMOTIDINE [Concomitant]
     Dates: start: 20080205, end: 20080205
  12. DEXTROSE/POTASSIUM CHLORIDE/SODIUM BICARBONATE [Concomitant]
     Dates: start: 20080205

REACTIONS (2)
  - ABDOMINAL PAIN [None]
  - SMALL INTESTINAL OBSTRUCTION [None]
